FAERS Safety Report 5092248-0 (Version None)
Quarter: 2006Q3

REPORT INFORMATION
  Report Type: 
  Country: None (occurrence: None)
  Receive Date: 20060828
  Receipt Date: 20060828
  Transmission Date: 20061208
  Serious: Yes (Hospitalization)
  Sender: FDA-Public Use
  Company Number: None

PATIENT
  Age: 72 Year
  Sex: Male
  Weight: 101.2 kg

DRUGS (1)
  1. ETODOLAC [Suspect]
     Indication: MUSCULOSKELETAL PAIN
     Dosage: 300MG BID PO
     Route: 048

REACTIONS (5)
  - DUODENITIS [None]
  - GASTRITIS EROSIVE [None]
  - GASTROINTESTINAL HAEMORRHAGE [None]
  - OSTEOARTHRITIS [None]
  - RADIATION INJURY [None]
